FAERS Safety Report 19078445 (Version 9)
Quarter: 2023Q4

REPORT INFORMATION
  Report Type: Other
  Country: DE (occurrence: None)
  Receive Date: 20210331
  Receipt Date: 20231025
  Transmission Date: 20240110
  Serious: Yes (Hospitalization)
  Sender: FDA-Public Use
  Company Number: DE-ROCHE-2348119

PATIENT
  Age: 61 Year
  Sex: Male

DRUGS (15)
  1. OCREVUS [Suspect]
     Active Substance: OCRELIZUMAB
     Indication: Primary progressive multiple sclerosis
     Dosage: DOSE: 600MG, FREQUENCY: 217 DAYS
     Route: 042
     Dates: start: 20181005, end: 20181005
  2. OCREVUS [Suspect]
     Active Substance: OCRELIZUMAB
     Route: 042
     Dates: start: 20181023
  3. OCREVUS [Suspect]
     Active Substance: OCRELIZUMAB
     Route: 042
     Dates: start: 20190619
  4. OCREVUS [Suspect]
     Active Substance: OCRELIZUMAB
     Route: 042
     Dates: start: 20201005
  5. OCREVUS [Suspect]
     Active Substance: OCRELIZUMAB
     Route: 042
     Dates: start: 20210813
  6. MODERNA COVID-19 VACCINE [Suspect]
     Active Substance: ELASOMERAN
     Indication: Product used for unknown indication
     Route: 065
  7. NALOXONE HYDROCHLORIDE\TILIDINE HYDROCHLORIDE [Concomitant]
     Active Substance: NALOXONE HYDROCHLORIDE\TILIDINE HYDROCHLORIDE
  8. PREGABALIN [Concomitant]
     Active Substance: PREGABALIN
  9. DULOXETINE HYDROCHLORIDE [Concomitant]
     Active Substance: DULOXETINE HYDROCHLORIDE
  10. CANDESARTAN [Concomitant]
     Active Substance: CANDESARTAN
  11. BISOPROLOL [Concomitant]
     Active Substance: BISOPROLOL\BISOPROLOL FUMARATE
  12. DIGITOXIN [Concomitant]
     Active Substance: DIGITOXIN
  13. TAMSULOSIN [Concomitant]
     Active Substance: TAMSULOSIN
  14. ELIQUIS [Concomitant]
     Active Substance: APIXABAN
  15. MODAFINIL [Concomitant]
     Active Substance: MODAFINIL

REACTIONS (12)
  - Abscess limb [Recovered/Resolved]
  - B-lymphocyte count decreased [Recovered/Resolved]
  - Urinary tract infection [Recovered/Resolved]
  - Bladder dysfunction [Not Recovered/Not Resolved]
  - Blood test abnormal [Recovered/Resolved]
  - Glycosylated haemoglobin increased [Recovered/Resolved]
  - White blood cell count abnormal [Recovered/Resolved]
  - Pain in extremity [Not Recovered/Not Resolved]
  - Lymphocyte count decreased [Recovered/Resolved]
  - Fatigue [Recovering/Resolving]
  - Gait disturbance [Recovered/Resolved]
  - B-lymphocyte abnormalities [Recovered/Resolved]

NARRATIVE: CASE EVENT DATE: 20190320
